FAERS Safety Report 5858598-2 (Version None)
Quarter: 2008Q3

REPORT INFORMATION
  Report Type: 
  Country: None (occurrence: None)
  Receive Date: 20080826
  Receipt Date: 20080813
  Transmission Date: 20090109
  Serious: Yes (Other)
  Sender: FDA-Public Use
  Company Number: DE-ELI_LILLY_AND_COMPANY-DE200806005223

PATIENT
  Age: 21 Year
  Sex: Female

DRUGS (3)
  1. CYMBALTA [Suspect]
     Indication: DEPRESSION
     Dosage: 30-60 MG, DAILY (1/D)
     Route: 048
     Dates: start: 20080616, end: 20080601
  2. CYMBALTA [Suspect]
     Dosage: 30 MG, DAILY (1/D)
     Route: 048
     Dates: start: 20080601, end: 20080601
  3. CYMBALTA [Suspect]
     Dosage: 60 MG, DAILY (1/D)
     Route: 048
     Dates: start: 20080601

REACTIONS (5)
  - ACCOMMODATION DISORDER [None]
  - MYDRIASIS [None]
  - NAUSEA [None]
  - PARAESTHESIA [None]
  - SINUS TACHYCARDIA [None]
